FAERS Safety Report 19202776 (Version 1)
Quarter: 2021Q2

REPORT INFORMATION
  Report Type: Spontaneous
  Country: SE (occurrence: SE)
  Receive Date: 20210502
  Receipt Date: 20210502
  Transmission Date: 20210717
  Serious: Yes (Death)
  Sender: FDA-Public Use
  Company Number: NVSC2021SE098517

PATIENT
  Age: 88 Year
  Sex: Female

DRUGS (1)
  1. LINEZOLID SANDOZ 600 MG FILMDRAGERADE TABLETTER [Suspect]
     Active Substance: LINEZOLID
     Indication: POSTOPERATIVE WOUND INFECTION
     Dosage: 600 MG,QD (600 MG 0.5X2)
     Route: 048
     Dates: start: 20210126, end: 20210327

REACTIONS (7)
  - Shock [Fatal]
  - Hepatitis [Fatal]
  - Hypoglycaemia [Fatal]
  - Pancreatitis [Fatal]
  - Hyperkalaemia [Fatal]
  - Lactic acidosis [Fatal]
  - Acute kidney injury [Fatal]

NARRATIVE: CASE EVENT DATE: 20210327
